FAERS Safety Report 10536673 (Version 1)
Quarter: 2014Q4

REPORT INFORMATION
  Report Type: Spontaneous
  Country: US (occurrence: US)
  Receive Date: 20141022
  Receipt Date: 20141022
  Transmission Date: 20150529
  Serious: Yes (Hospitalization, Other)
  Sender: FDA-Public Use
  Company Number: US-SA-2014SA141209

PATIENT
  Age: 21 Year
  Sex: Female

DRUGS (3)
  1. APIDRA [Concomitant]
     Active Substance: INSULIN GLULISINE
     Dosage: 17 UNITS IN MORNING AND AT LUNCH AND 12 UNITS AT NIGHT
  2. SOLOSTAR [Concomitant]
     Active Substance: DEVICE
  3. LANTUS SOLOSTAR [Suspect]
     Active Substance: INSULIN GLARGINE
     Indication: DIABETES MELLITUS
     Dosage: DOSE:30 UNIT(S)
     Route: 065

REACTIONS (4)
  - Renal failure [Unknown]
  - Drug administration error [Unknown]
  - Escherichia infection [Unknown]
  - Stillbirth [Unknown]

NARRATIVE: CASE EVENT DATE: 201306
